FAERS Safety Report 8396145-4 (Version None)
Quarter: 2012Q2

REPORT INFORMATION
  Report Type: 
  Country: None (occurrence: None)
  Receive Date: 20120530
  Receipt Date: 20120522
  Transmission Date: 20120825
  Serious: Yes (Congenital Anomaly)
  Sender: FDA-Public Use
  Company Number: US-GLAXOSMITHKLINE-A0979131A

PATIENT
  Sex: Female

DRUGS (10)
  1. METHADONE [Concomitant]
     Dosage: 90MG PER DAY
  2. MULTI-VITAMINS [Concomitant]
  3. BACTRIM [Concomitant]
  4. PROVENAL [Concomitant]
  5. PREDNISONE TAB [Concomitant]
  6. PULMICORT [Concomitant]
  7. PAXIL [Suspect]
     Indication: ANXIETY
     Route: 064
  8. PEPCID [Concomitant]
  9. ROXICODONE [Concomitant]
  10. PROVENTIL [Concomitant]

REACTIONS (5)
  - RIGHT VENTRICULAR HYPERTROPHY [None]
  - CLEFT PALATE [None]
  - PULMONARY HYPERTENSION [None]
  - FOETAL EXPOSURE DURING PREGNANCY [None]
  - COR PULMONALE [None]
